FAERS Safety Report 7361862-1 (Version None)
Quarter: 2011Q1

REPORT INFORMATION
  Report Type: 
  Country: None (occurrence: None)
  Receive Date: 20110318
  Receipt Date: 20100817
  Transmission Date: 20110831
  Serious: Yes (Hospitalization, Other)
  Sender: FDA-Public Use
  Company Number: US-BAYER-201027988NA

PATIENT
  Sex: Female
  Weight: 124.72 kg

DRUGS (6)
  1. CLARITIN [Concomitant]
  2. FLONASE [Concomitant]
     Dosage: UNK
     Dates: start: 20000101
  3. MIDRIN [Concomitant]
  4. YAZ [Suspect]
     Indication: ORAL CONTRACEPTION
     Dosage: UNK
     Route: 048
     Dates: start: 20071125, end: 20090418
  5. UNCODEABLE ^UNCLASSIFIABLE^ [Concomitant]
  6. SINGULAIR [Concomitant]

REACTIONS (2)
  - DEEP VEIN THROMBOSIS [None]
  - PAIN [None]
